FAERS Safety Report 6274299-3 (Version None)
Quarter: 2009Q3

REPORT INFORMATION
  Report Type: 
  Country: None (occurrence: None)
  Receive Date: 20090716
  Receipt Date: 20090701
  Transmission Date: 20100115
  Serious: Yes (Life-Threatening, Hospitalization)
  Sender: FDA-Public Use
  Company Number: 2009001814

PATIENT
  Age: 47 Year
  Sex: Male

DRUGS (23)
  1. ERLOTINIB (ERLOTINIB) (TABLET) (ERLOTINIB) [Suspect]
     Indication: PANCREATIC CARCINOMA METASTATIC
     Dosage: 100 MG, QD, ORAL
     Route: 048
     Dates: start: 20090526, end: 20090609
  2. GEMCITABINE [Suspect]
     Indication: PANCREATIC CARCINOMA METASTATIC
     Dosage: 1970 MG, QW, INTRAVENOUS
     Route: 042
     Dates: start: 20090526, end: 20090609
  3. AMLODIPINE [Concomitant]
  4. BISOPROLOL FUMARATE [Concomitant]
  5. DOXEPIN HCL [Concomitant]
  6. ENOXAPARIN SODIUM [Concomitant]
  7. DROTAVERINE (DROTAVERINE) [Concomitant]
  8. FERROUS SULPHATE (FERROUS SULFATE) [Concomitant]
  9. FOLIC ACID [Concomitant]
  10. SPIRONOLACTONE [Concomitant]
  11. LIDOCAINE [Concomitant]
  12. HALOPERIDOL [Concomitant]
  13. FENTANYL-100 [Concomitant]
  14. BACTRIM [Concomitant]
  15. METRONIDAZOLE (METRONIDAZOLE) [Concomitant]
  16. FUROSEMIDE [Concomitant]
  17. FLUCONAZOLE [Concomitant]
  18. METOCLOPRAMIDE [Concomitant]
  19. PARACETAMOL (PARACETAMOL) [Concomitant]
  20. RANITIDINE [Concomitant]
  21. HYOSCINE HYDROCHLORIDE [Concomitant]
  22. ESOMEPRAZOLE MAGNESIUM [Concomitant]
  23. ETAMSYLATE [Concomitant]

REACTIONS (9)
  - ASCITES [None]
  - ASPARTATE AMINOTRANSFERASE INCREASED [None]
  - BLOOD ALBUMIN DECREASED [None]
  - BLOOD CREATINE INCREASED [None]
  - DISEASE PROGRESSION [None]
  - HAEMOGLOBIN DECREASED [None]
  - ILEUS [None]
  - INTESTINAL FISTULA [None]
  - PERFORMANCE STATUS DECREASED [None]
